FAERS Safety Report 6285495-3 (Version None)
Quarter: 2009Q3

REPORT INFORMATION
  Report Type: 
  Country: None (occurrence: None)
  Receive Date: 20090727
  Receipt Date: 20090716
  Transmission Date: 20100115
  Serious: Yes (Hospitalization)
  Sender: FDA-Public Use
  Company Number: CH-BAYER-200925665GPV

PATIENT
  Age: 30 Year
  Sex: Female
  Weight: 50 kg

DRUGS (5)
  1. ASPIRIN [Suspect]
     Indication: PYREXIA
     Dosage: TOTAL DAILY DOSE: 1000 MG  UNIT DOSE: 500 MG
     Route: 048
     Dates: start: 20090613, end: 20090618
  2. ACETAMINOPHEN [Suspect]
     Indication: PYREXIA
     Dosage: TOTAL DAILY DOSE: 1000 MG  UNIT DOSE: 500 MG
     Route: 048
     Dates: start: 20090613, end: 20090618
  3. TETRALYSAL (LYMECYLINE) [Suspect]
     Indication: ACNE
     Dosage: TOTAL DAILY DOSE: 300 MG  UNIT DOSE: 300 MG
     Route: 048
     Dates: start: 20090605, end: 20090617
  4. DIFFERIN [Suspect]
     Indication: ACNE
     Route: 061
     Dates: start: 20090605, end: 20090617
  5. TIZANIDINE HCL [Suspect]
     Indication: MYALGIA
     Dosage: TOTAL DAILY DOSE: 6 MG  UNIT DOSE: 2 MG
     Route: 048
     Dates: start: 20090615, end: 20090618

REACTIONS (6)
  - ALANINE AMINOTRANSFERASE INCREASED [None]
  - ASPARTATE AMINOTRANSFERASE INCREASED [None]
  - HEPATIC ENZYME INCREASED [None]
  - MYALGIA [None]
  - PYREXIA [None]
  - RASH MACULO-PAPULAR [None]
